FAERS Safety Report 4286428-1 (Version None)
Quarter: 2004Q1

REPORT INFORMATION
  Report Type: 
  Country: None (occurrence: None)
  Receive Date: 20040205
  Receipt Date: 20040205
  Transmission Date: 20041129
  Serious: No
  Sender: FDA-Public Use
  Company Number: None

PATIENT
  Age: 61 Year
  Sex: Female

DRUGS (1)
  1. ARIPIPRAZOLE 20 MG [Suspect]
     Indication: PSYCHOTIC DISORDER
     Dosage: 20 MG QHS PO
     Route: 048
     Dates: start: 20030601, end: 20040201

REACTIONS (2)
  - CONVULSION [None]
  - FALL [None]
